FAERS Safety Report 7023725-0 (Version None)
Quarter: 2010Q4

REPORT INFORMATION
  Report Type: 
  Country: None (occurrence: None)
  Receive Date: 20101001
  Receipt Date: 20100708
  Transmission Date: 20110411
  Serious: Yes (Hospitalization, Other)
  Sender: FDA-Public Use
  Company Number: US-BAYER-200943413NA

PATIENT
  Age: 34 Year
  Sex: Female
  Weight: 132 kg

DRUGS (6)
  1. YASMIN [Suspect]
     Indication: PRODUCT USED FOR UNKNOWN INDICATION
     Route: 048
     Dates: start: 20071029
  2. TRAMADOL HCL [Concomitant]
  3. ASPIRIN [Concomitant]
  4. ENALAPRIL MALEATE [Concomitant]
  5. METFORMIN [Concomitant]
  6. ZANTAC [Concomitant]
     Indication: GASTROOESOPHAGEAL REFLUX DISEASE

REACTIONS (7)
  - DEEP VEIN THROMBOSIS [None]
  - GAIT DISTURBANCE [None]
  - HOMANS' SIGN [None]
  - IRON DEFICIENCY ANAEMIA [None]
  - MENORRHAGIA [None]
  - PAIN IN EXTREMITY [None]
  - SWELLING [None]
